FAERS Safety Report 7731478-3 (Version None)
Quarter: 2011Q3

REPORT INFORMATION
  Report Type: 
  Country: None (occurrence: None)
  Receive Date: 20110906
  Receipt Date: 20110824
  Transmission Date: 20111222
  Serious: Yes (Other)
  Sender: FDA-Public Use
  Company Number: TR-TYCO HEALTHCARE/MALLINCKRODT-T201101694

PATIENT
  Age: 18 Year
  Sex: Female

DRUGS (2)
  1. ANAFRANIL CAP [Suspect]
     Dosage: 25 MG, QD
  2. ANAFRANIL CAP [Suspect]
     Indication: DEPRESSION
     Dosage: 75 MG, QD

REACTIONS (3)
  - ASPARTATE AMINOTRANSFERASE INCREASED [None]
  - HEPATOTOXICITY [None]
  - ALANINE AMINOTRANSFERASE INCREASED [None]
